FAERS Safety Report 19741358 (Version 1)
Quarter: 2021Q3

REPORT INFORMATION
  Report Type: Report from Study
  Country: US (occurrence: US)
  Receive Date: 20210825
  Receipt Date: 20210825
  Transmission Date: 20211014
  Serious: Yes (Other)
  Sender: FDA-Public Use
  Company Number: NVSC2021US187305

PATIENT
  Sex: Female

DRUGS (1)
  1. ENTRESTO [Suspect]
     Active Substance: SACUBITRIL\VALSARTAN
     Indication: PRODUCT USED FOR UNKNOWN INDICATION
     Dosage: 0.5 MG, BID (24/26MG)
     Route: 065

REACTIONS (4)
  - Blood pressure diastolic decreased [Unknown]
  - Loss of consciousness [Unknown]
  - Prescribed underdose [Unknown]
  - Wrong technique in product usage process [Unknown]
